FAERS Safety Report 21117796 (Version 2)
Quarter: 2022Q3

REPORT INFORMATION
  Report Type: Spontaneous
  Country: NL (occurrence: NL)
  Receive Date: 20220722
  Receipt Date: 20220730
  Transmission Date: 20221027
  Serious: Yes (Death, Life-Threatening, Hospitalization, Other)
  Sender: FDA-Public Use
  Company Number: NL-MLMSERVICE-20220705-3654659-1

PATIENT
  Age: 61 Year
  Sex: Male

DRUGS (2)
  1. CLOZAPINE [Suspect]
     Active Substance: CLOZAPINE
     Indication: Schizophrenia
     Dosage: UNK (FOR SEVERAL DECADES)
     Route: 065
  2. CLOZAPINE [Suspect]
     Active Substance: CLOZAPINE
     Dosage: DOSE WAS HALVED
     Route: 065

REACTIONS (8)
  - Gastrointestinal hypomotility [Fatal]
  - Pneumonia aspiration [Fatal]
  - Ileus paralytic [Fatal]
  - Volvulus [Fatal]
  - Faecaloma [Fatal]
  - Volvulus of small bowel [Fatal]
  - Intestinal ischaemia [Fatal]
  - Pyrexia [Unknown]
